FAERS Safety Report 10770799 (Version 4)
Quarter: 2015Q1

REPORT INFORMATION
  Report Type: Spontaneous
  Country: NL (occurrence: NL)
  Receive Date: 20150206
  Receipt Date: 20150319
  Transmission Date: 20150721
  Serious: Yes (Hospitalization, Other)
  Sender: FDA-Public Use
  Company Number: CHPA2015NL001372

PATIENT
  Age: 37 Year
  Sex: Female

DRUGS (14)
  1. NICOTINELL [Suspect]
     Active Substance: NICOTINE
     Indication: SMOKING CESSATION THERAPY
     Dosage: 2 MG, ABOUT 22 X 2 MG= 44 MG DAILY
     Route: 048
     Dates: start: 201310
  2. SUMATRIPTAN. [Concomitant]
     Active Substance: SUMATRIPTAN
     Indication: PRODUCT USED FOR UNKNOWN INDICATION
     Dosage: 50 MG, UNK
     Route: 065
  3. NICOTINELL [Suspect]
     Active Substance: NICOTINE
     Dosage: 4 MG, ABOUT 12 X 4 MG= 48 MG DAILY
     Route: 048
     Dates: start: 2003, end: 2012
  4. SALBUTAMOL AEROSOL ^RATIOPHARM^ [Concomitant]
     Indication: ASTHMA
     Dosage: UNK, TID
     Route: 065
     Dates: start: 20070126
  5. SERETIDE [Concomitant]
     Active Substance: FLUTICASONE FUROATE\SALMETEROL XINAFOATE
     Indication: ASTHMA
     Dosage: UNK UNK, TID
     Route: 065
  6. CUTIVATE [Concomitant]
     Active Substance: FLUTICASONE PROPIONATE
     Indication: PRODUCT USED FOR UNKNOWN INDICATION
     Dosage: UNK
     Route: 065
  7. HYDROCORTISONE. [Concomitant]
     Active Substance: HYDROCORTISONE
     Indication: PRODUCT USED FOR UNKNOWN INDICATION
     Dosage: 5 MG, UNK
     Route: 065
     Dates: start: 20050607, end: 20051204
  8. PROTOPIC [Concomitant]
     Active Substance: TACROLIMUS
     Indication: PRODUCT USED FOR UNKNOWN INDICATION
     Dosage: UNK
     Route: 065
  9. CHLORTHALIDONE SANDOZ [Suspect]
     Active Substance: CHLORTHALIDONE
     Indication: HYPERTENSION
     Dosage: UNK
     Route: 048
     Dates: start: 20150108
  10. CORTICOSTEROIDS [Concomitant]
     Active Substance: CORTICOSTEROID NOS
     Indication: PRODUCT USED FOR UNKNOWN INDICATION
     Dosage: UNK
     Route: 065
  11. CITALOPRAM [Concomitant]
     Active Substance: CITALOPRAM HYDROBROMIDE
     Indication: ANTIDEPRESSANT THERAPY
     Dosage: 1 DF, EVERY 2 DAYS
     Route: 065
     Dates: start: 20111216, end: 20150126
  12. LEVOCETIRIZINE [Concomitant]
     Active Substance: LEVOCETIRIZINE
     Indication: ANTIALLERGIC THERAPY
     Dosage: 5 MG, BID
     Route: 048
  13. NICOTINELL [Suspect]
     Active Substance: NICOTINE
     Dosage: 2 MG, ABOUT 22 X 2 MG= 44 MG DAILY
     Route: 048
     Dates: start: 2012, end: 201310
  14. BETAMETHASONE [Concomitant]
     Active Substance: BETAMETHASONE
     Indication: PRODUCT USED FOR UNKNOWN INDICATION
     Dosage: UNK
     Route: 065

REACTIONS (17)
  - Nystagmus [Recovered/Resolved]
  - Uterine leiomyoma [Unknown]
  - Headache [Recovered/Resolved]
  - Diplopia [Recovered/Resolved]
  - Blood pressure increased [Unknown]
  - General physical health deterioration [Not Recovered/Not Resolved]
  - Nausea [Recovered/Resolved]
  - Transient ischaemic attack [Recovered/Resolved]
  - Vomiting [Recovered/Resolved]
  - Hypertension [Unknown]
  - Incorrect dose administered [Unknown]
  - Vertigo [Recovered/Resolved]
  - Dizziness [Recovered/Resolved]
  - Hypokalaemia [Recovered/Resolved]
  - Stress [Unknown]
  - Aphasia [Recovered/Resolved]
  - Incorrect drug administration duration [Unknown]

NARRATIVE: CASE EVENT DATE: 2003
